FAERS Safety Report 13201741 (Version 1)
Quarter: 2017Q1

REPORT INFORMATION
  Report Type: Spontaneous
  Country: US (occurrence: US)
  Receive Date: 20170208
  Receipt Date: 20170208
  Transmission Date: 20170428
  Serious: No
  Sender: FDA-Public Use
  Company Number: US-AMGEN-USASP2016070433

PATIENT
  Sex: Female

DRUGS (5)
  1. HERCEPTIN [Concomitant]
     Active Substance: TRASTUZUMAB
  2. PARAPLATIN [Concomitant]
     Active Substance: CARBOPLATIN
  3. PERJETA [Concomitant]
     Active Substance: PERTUZUMAB
     Dosage: UNK
  4. NEULASTA [Suspect]
     Active Substance: PEGFILGRASTIM
     Indication: PRODUCT USED FOR UNKNOWN INDICATION
     Dosage: UNK UNK, UNK
     Route: 065
  5. TAXOTERE [Concomitant]
     Active Substance: DOCETAXEL
     Dosage: UNK

REACTIONS (1)
  - White blood cell count increased [Unknown]
